FAERS Safety Report 24324408 (Version 1)
Quarter: 2024Q3

REPORT INFORMATION
  Report Type: Spontaneous
  Country: US (occurrence: None)
  Receive Date: 20240913
  Receipt Date: 20240913
  Transmission Date: 20241017
  Serious: Yes (Other)
  Sender: Public
  Company Number: None

PATIENT
  Age: 23 Year
  Sex: Female
  Weight: 63.5 kg

DRUGS (1)
  1. LYBALVI [Suspect]
     Active Substance: OLANZAPINE\SAMIDORPHAN L-MALATE

REACTIONS (6)
  - Hypoaesthesia [None]
  - Paraesthesia [None]
  - Hot flush [None]
  - Confusional state [None]
  - Disorientation [None]
  - Therapy cessation [None]

NARRATIVE: CASE EVENT DATE: 20240823
